FAERS Safety Report 5158145-7 (Version None)
Quarter: 2006Q4

REPORT INFORMATION
  Report Type: 
  Country: None (occurrence: None)
  Receive Date: 20061120
  Receipt Date: 20061120
  Transmission Date: 20070319
  Serious: Yes (Hospitalization)
  Sender: FDA-Public Use
  Company Number: None

PATIENT
  Age: 54 Year
  Sex: Female

DRUGS (9)
  1. NABUMETONE [Suspect]
     Indication: OSTEOARTHRITIS
     Dosage: 500 MG AFTER MEALS PO
     Route: 048
  2. ASPIRIN [Suspect]
     Dosage: 81 MG OD PO
     Route: 048
  3. GLIPIZIDE [Concomitant]
  4. LISINOPRIL [Concomitant]
  5. HYDROCHLOROTHIAZIDE [Concomitant]
  6. LESCOL [Concomitant]
  7. METFORMIN HCL [Concomitant]
  8. AVANDIA [Concomitant]
  9. PREVACID [Concomitant]

REACTIONS (1)
  - GASTRITIS [None]
